FAERS Safety Report 22586000 (Version 1)
Quarter: 2023Q2

REPORT INFORMATION
  Report Type: Spontaneous
  Country: FR (occurrence: FR)
  Receive Date: 20230610
  Receipt Date: 20230610
  Transmission Date: 20230722
  Serious: Yes (Life-Threatening)
  Sender: FDA-Public Use
  Company Number: None

PATIENT
  Age: 26 Year
  Sex: Male

DRUGS (4)
  1. METHYLPHENIDATE [Suspect]
     Active Substance: METHYLPHENIDATE
     Indication: Product used for unknown indication
     Dates: start: 202305
  2. FENTANYL [Suspect]
     Active Substance: FENTANYL
     Indication: Road traffic accident
     Dates: start: 202305
  3. COCAINE [Suspect]
     Active Substance: COCAINE
     Indication: Product used for unknown indication
     Dates: start: 202305
  4. VALIUM [Suspect]
     Active Substance: DIAZEPAM
     Indication: Drug dependence
     Dates: start: 202305

REACTIONS (2)
  - Drug dependence [Not Recovered/Not Resolved]
  - Respiratory failure [Not Recovered/Not Resolved]

NARRATIVE: CASE EVENT DATE: 20230501
